FAERS Safety Report 5166597-1 (Version None)
Quarter: 2006Q4

REPORT INFORMATION
  Report Type: 
  Country: None (occurrence: None)
  Receive Date: 20061207
  Receipt Date: 20061129
  Transmission Date: 20070319
  Serious: Yes (Life-Threatening)
  Sender: FDA-Public Use
  Company Number: PL-AVENTIS-200616072EU

PATIENT
  Age: 48 Year
  Sex: Female
  Weight: 93 kg

DRUGS (3)
  1. CLEXANE [Suspect]
     Indication: CAST APPLICATION
     Route: 058
     Dates: start: 20061116, end: 20061116
  2. BIOXETIN                           /00724401/ [Concomitant]
     Indication: DEPRESSION
     Route: 048
  3. DOXYCYCLINUM [Concomitant]
     Indication: BRONCHITIS
     Route: 048
     Dates: start: 20061113, end: 20061116

REACTIONS (4)
  - HYPOTENSION [None]
  - HYPOTONIA [None]
  - LOSS OF CONSCIOUSNESS [None]
  - SYNCOPE [None]
